FAERS Safety Report 18001850 (Version 3)
Quarter: 2021Q2

REPORT INFORMATION
  Report Type: Report from Study
  Country: US (occurrence: US)
  Receive Date: 20200709
  Receipt Date: 20210413
  Transmission Date: 20210717
  Serious: Yes (Hospitalization, Other)
  Sender: FDA-Public Use
  Company Number: US-BRISTOL-MYERS SQUIBB COMPANY-BMS-2020-053449

PATIENT
  Age: 66 Year
  Sex: Female
  Weight: 85.71 kg

DRUGS (6)
  1. METHOTREXATE. [Concomitant]
     Active Substance: METHOTREXATE
     Indication: PRODUCT USED FOR UNKNOWN INDICATION
     Dosage: UNK
     Route: 065
     Dates: start: 20171121, end: 20191212
  2. ABATACEPT [Suspect]
     Active Substance: ABATACEPT
     Indication: RHEUMATOID ARTHRITIS
     Dosage: 125 MILLIGRAM, QWK
     Route: 058
     Dates: start: 20180712, end: 20191212
  3. PREDNISONE. [Concomitant]
     Active Substance: PREDNISONE
     Indication: PRODUCT USED FOR UNKNOWN INDICATION
     Dosage: UNK
     Route: 065
     Dates: start: 201305
  4. ABATACEPT [Suspect]
     Active Substance: ABATACEPT
     Dosage: 750 MILLIGRAM, Q4WK
     Route: 058
     Dates: start: 20100316, end: 20101207
  5. ABATACEPT [Suspect]
     Active Substance: ABATACEPT
     Dosage: UNK
     Route: 065
     Dates: end: 20200110
  6. ASPIRIN [ACETYLSALICYLIC ACID] [Concomitant]
     Active Substance: ASPIRIN
     Indication: PRODUCT USED FOR UNKNOWN INDICATION
     Dosage: UNK
     Route: 065

REACTIONS (12)
  - Diverticulitis [Recovered/Resolved]
  - Streptococcal abscess [Unknown]
  - Tachycardia [Unknown]
  - Weight increased [Unknown]
  - Sepsis [Recovered/Resolved]
  - Ischaemia [Unknown]
  - Intentional product use issue [Unknown]
  - Abscess intestinal [Recovered/Resolved]
  - Candida test positive [Unknown]
  - Pneumonia [Recovered/Resolved]
  - Bacterial infection [Unknown]
  - Hypotension [Unknown]

NARRATIVE: CASE EVENT DATE: 201912
